FAERS Safety Report 14640915 (Version 1)
Quarter: 2018Q1

REPORT INFORMATION
  Report Type: Spontaneous
  Country: US (occurrence: US)
  Receive Date: 20180314
  Receipt Date: 20180314
  Transmission Date: 20180509
  Serious: Yes (Death)
  Sender: FDA-Public Use
  Company Number: None

PATIENT
  Age: 59 Year
  Sex: Female

DRUGS (6)
  1. HYDROMET SYRUP [Concomitant]
  2. XELODA [Suspect]
     Active Substance: CAPECITABINE
     Indication: BREAST CANCER
     Dosage: ?          OTHER FREQUENCY:BID X 14/21 DAYS;?
     Route: 048
     Dates: start: 20180226, end: 20180305
  3. POTASSIUM CL 20MEQ [Concomitant]
  4. PAROXETINE 20MG [Concomitant]
     Active Substance: PAROXETINE
  5. FUROSEMID 20 MG [Concomitant]
  6. BENZONATATE 100MG [Concomitant]
     Active Substance: BENZONATATE

REACTIONS (1)
  - Death [None]

NARRATIVE: CASE EVENT DATE: 20180305
